FAERS Safety Report 4483891-8 (Version None)
Quarter: 2004Q4

REPORT INFORMATION
  Report Type: 
  Country: None (occurrence: None)
  Receive Date: 20041022
  Receipt Date: 20041022
  Transmission Date: 20050328
  Serious: Yes (Hospitalization)
  Sender: FDA-Public Use
  Company Number: None

PATIENT
  Sex: Female
  Weight: 68 kg

DRUGS (11)
  1. MESNA [Suspect]
     Indication: SARCOMA
     Dosage: EVERY 3 WEEKS 1462 MG - 12 DOSES OVER 4 DAYS
     Dates: end: 20041015
  2. EPIRUBICIN [Suspect]
     Dosage: EVERY 3 WEEKS 156 MG QD X 4 DAYS
     Dates: end: 20041015
  3. IFOSFAMIDE [Suspect]
     Dosage: 4300MG X 4 DAY EVERY 3 WEEKS
     Dates: end: 20041015
  4. LOVENOX [Concomitant]
  5. COMPAZINE [Concomitant]
  6. DECADRON [Concomitant]
  7. KEFLEX [Concomitant]
  8. ZOFRAN [Concomitant]
  9. DIAZIDE [Concomitant]
  10. ELAVIL [Concomitant]
  11. EPOGEN [Concomitant]

REACTIONS (3)
  - FEBRILE NEUTROPENIA [None]
  - HAEMOGLOBIN DECREASED [None]
  - PLATELET COUNT DECREASED [None]
